FAERS Safety Report 15335948 (Version 1)
Quarter: 2018Q3

REPORT INFORMATION
  Report Type: Spontaneous
  Country: GB (occurrence: FR)
  Receive Date: 20180830
  Receipt Date: 20180830
  Transmission Date: 20181010
  Serious: Yes (Life-Threatening)
  Sender: FDA-Public Use
  Company Number: FR-FRESENIUS KABI-FK201808859

PATIENT
  Age: 31 Year
  Sex: Female
  Weight: 61 kg

DRUGS (13)
  1. ZOPHREN [Suspect]
     Active Substance: ONDANSETRON
     Indication: PROPHYLAXIS OF NAUSEA AND VOMITING
     Route: 041
     Dates: start: 20180710, end: 20180710
  2. SUFENTANIL [Suspect]
     Active Substance: SUFENTANIL
     Indication: SPINAL ANAESTHESIA
     Route: 037
     Dates: start: 20180710, end: 20180710
  3. CEFUROXIME. [Suspect]
     Active Substance: CEFUROXIME
     Indication: ANTIBIOTIC PROPHYLAXIS
     Route: 041
     Dates: start: 20180710, end: 20180710
  4. EXACYL [Suspect]
     Active Substance: TRANEXAMIC ACID
     Indication: PERIPARTUM HAEMORRHAGE
     Route: 041
     Dates: start: 20180710, end: 20180710
  5. MORPHINE [Suspect]
     Active Substance: MORPHINE
     Indication: SPINAL ANAESTHESIA
     Route: 037
     Dates: start: 20180710, end: 20180710
  6. SYNTOCINON [Concomitant]
     Active Substance: OXYTOCIN
     Indication: CAESAREAN SECTION
     Route: 041
     Dates: start: 20180710, end: 20180710
  7. CELOCURINE [Concomitant]
     Indication: ANAESTHESIA
     Route: 041
     Dates: start: 20180710, end: 20180710
  8. PROPOFOL (MANUFACTURER UNKNOWN) [Suspect]
     Active Substance: PROPOFOL
     Indication: ANAESTHESIA
     Route: 041
     Dates: start: 20180710, end: 20180710
  9. CLOTTAFACT [Suspect]
     Active Substance: FIBRINOGEN HUMAN
     Indication: PERIPARTUM HAEMORRHAGE
     Route: 041
     Dates: start: 20180710, end: 20180710
  10. PHENYLEPHRINE [Suspect]
     Active Substance: PHENYLEPHRINE\PHENYLEPHRINE HYDROCHLORIDE
     Indication: HYPOTENSION
     Route: 041
     Dates: start: 20180710, end: 20180710
  11. NORADRENALINE [Suspect]
     Active Substance: NOREPINEPHRINE
     Indication: HAEMODYNAMIC INSTABILITY
     Route: 041
     Dates: start: 20180710, end: 20180710
  12. BUPIVACAINE. [Suspect]
     Active Substance: BUPIVACAINE
     Indication: SPINAL ANAESTHESIA
     Route: 037
     Dates: start: 20180710, end: 20180710
  13. NALADOR [Suspect]
     Active Substance: SULPROSTONE
     Indication: PERIPARTUM HAEMORRHAGE
     Route: 041
     Dates: start: 20180710, end: 20180710

REACTIONS (1)
  - Cardio-respiratory arrest [Recovered/Resolved]

NARRATIVE: CASE EVENT DATE: 20180710
